FAERS Safety Report 5636294-4 (Version None)
Quarter: 2008Q1

REPORT INFORMATION
  Report Type: 
  Country: None (occurrence: None)
  Receive Date: 20080220
  Receipt Date: 20080220
  Transmission Date: 20080703
  Serious: No
  Sender: FDA-Public Use
  Company Number: None

PATIENT
  Sex: Male
  Weight: 56.246 kg

DRUGS (2)
  1. AMIFOSTINE [Suspect]
     Indication: DRY MOUTH
     Dosage: 500 MG M-F SQ 4 DOSES SINCE 2/07/08
     Route: 058
     Dates: start: 20080207
  2. AMIFOSTINE [Suspect]
     Indication: NEOPLASM MALIGNANT
     Dosage: 500 MG M-F SQ 4 DOSES SINCE 2/07/08
     Route: 058
     Dates: start: 20080207

REACTIONS (2)
  - PRURITUS [None]
  - RASH MACULO-PAPULAR [None]
